FAERS Safety Report 10210539 (Version 3)
Quarter: 2014Q3

REPORT INFORMATION
  Report Type: Report from Study
  Country: JP (occurrence: JP)
  Receive Date: 20140602
  Receipt Date: 20140703
  Transmission Date: 20150326
  Serious: Yes (Death, Life-Threatening, Hospitalization)
  Sender: FDA-Public Use
  Company Number: JP-SA-THYM-1003261

PATIENT
  Age: 81 Year
  Sex: Male
  Weight: 61 kg

DRUGS (20)
  1. THYMOGLOBULINE [Suspect]
     Active Substance: LAPINE T-LYMPHOCYTE IMMUNE GLOBULIN
     Indication: APLASTIC ANAEMIA
     Dosage: 150 MG, QD
     Route: 065
     Dates: start: 20120521, end: 20120529
  2. PREDONINE [Concomitant]
     Active Substance: PREDNISOLONE\PREDNISOLONE ACETATE\PREDNISOLONE SODIUM SUCCINATE
     Indication: PROPHYLAXIS
     Dates: start: 20120525, end: 20120614
  3. NEORAL [Suspect]
     Active Substance: CYCLOSPORINE
     Indication: APLASTIC ANAEMIA
     Route: 065
     Dates: start: 20120516, end: 20120525
  4. FEXOFENADINE HYDROCHLORIDE. [Concomitant]
     Active Substance: FEXOFENADINE HYDROCHLORIDE
     Indication: PROPHYLAXIS
     Dosage: 60 MG, BID
     Route: 065
     Dates: start: 20120521, end: 20120525
  5. LEVOFLOXACIN [Concomitant]
     Active Substance: LEVOFLOXACIN
     Indication: INFECTION PROPHYLAXIS
     Dosage: 500 MG, QD
     Route: 065
     Dates: start: 20120523, end: 20120524
  6. CICLOSPORIN [Concomitant]
     Active Substance: CYCLOSPORINE
     Indication: APLASTIC ANAEMIA
     Dosage: 75 MG, BID
     Route: 048
     Dates: start: 20120518, end: 20120521
  7. LANSOPRAZOLE. [Concomitant]
     Active Substance: LANSOPRAZOLE
     Dosage: 15 MG, QD
     Route: 065
     Dates: start: 20120522, end: 20120524
  8. HYDROCORTISONE. [Concomitant]
     Active Substance: HYDROCORTISONE
     Indication: PROPHYLAXIS
     Dosage: UNK
     Route: 065
  9. FUNGUARD [Concomitant]
     Active Substance: MICAFUNGIN SODIUM
     Indication: ANTIFUNGAL PROPHYLAXIS
     Dates: start: 20120525, end: 20120529
  10. DIOVAN [Concomitant]
     Active Substance: VALSARTAN
     Indication: HYPERTENSION
     Dates: end: 20120524
  11. FLUCONAZOLE. [Concomitant]
     Active Substance: FLUCONAZOLE
     Indication: INFECTION PROPHYLAXIS
     Dosage: 100 MG, QD
     Route: 065
     Dates: start: 20120508, end: 20120525
  12. ACICLOVIR [Concomitant]
     Active Substance: ACYCLOVIR
     Indication: INFECTION PROPHYLAXIS
     Dosage: 200 MG, QD
     Route: 065
     Dates: start: 20120519, end: 20120529
  13. CICLOSPORIN [Concomitant]
     Active Substance: CYCLOSPORINE
     Indication: APLASTIC ANAEMIA
     Dosage: 70 MG, BID
     Route: 048
     Dates: start: 20120522, end: 20120525
  14. METHYLPREDNISOLONE SODIUM SUCCINATE. [Concomitant]
     Active Substance: METHYLPREDNISOLONE SODIUM SUCCINATE
     Indication: PROPHYLAXIS
     Dosage: 125 MG, QD
     Route: 065
     Dates: start: 20120521, end: 20120524
  15. CILNIDIPINE [Concomitant]
     Active Substance: CILNIDIPINE
     Dosage: 10 MG, QD
     Route: 065
     Dates: start: 20120524, end: 20120525
  16. SOLU-MEDROL [Suspect]
     Active Substance: METHYLPREDNISOLONE SODIUM SUCCINATE
     Indication: PROPHYLAXIS
     Route: 065
     Dates: start: 20120521, end: 20120525
  17. CICLOSPORIN [Concomitant]
     Active Substance: CYCLOSPORINE
     Indication: APLASTIC ANAEMIA
     Dosage: 100 MG, BID
     Route: 048
     Dates: start: 20120516, end: 20120517
  18. ITRACONAZOLE. [Concomitant]
     Active Substance: ITRACONAZOLE
     Indication: INFECTION PROPHYLAXIS
     Dosage: 100 MG, ONCE
     Route: 065
     Dates: start: 20120525, end: 20120525
  19. ALOGLIPTIN BENZOATE [Concomitant]
     Active Substance: ALOGLIPTIN BENZOATE
     Indication: PRODUCT USED FOR UNKNOWN INDICATION
     Dosage: 12.5 MG, QD
     Route: 065
     Dates: start: 20120515, end: 20120522
  20. DEFERASIROX [Concomitant]
     Active Substance: DEFERASIROX
     Indication: PRODUCT USED FOR UNKNOWN INDICATION
     Dosage: 750 MG, QD
     Route: 065
     Dates: start: 20120509, end: 20120521

REACTIONS (5)
  - White blood cell count decreased [Not Recovered/Not Resolved]
  - Renal disorder [Not Recovered/Not Resolved]
  - Staphylococcal infection [Fatal]
  - Platelet count decreased [Not Recovered/Not Resolved]
  - Influenza like illness [Recovered/Resolved]

NARRATIVE: CASE EVENT DATE: 20120521
